FAERS Safety Report 7055984-2 (Version None)
Quarter: 2010Q4

REPORT INFORMATION
  Report Type: 
  Country: None (occurrence: None)
  Receive Date: 20101021
  Receipt Date: 20101018
  Transmission Date: 20110411
  Serious: Yes (Death)
  Sender: FDA-Public Use
  Company Number: A0887382A

PATIENT
  Age: 60 Year
  Sex: Female

DRUGS (2)
  1. ADVAIR DISKUS 100/50 [Suspect]
     Indication: EMPHYSEMA
     Route: 055
  2. CONCURRENT MEDICATIONS [Concomitant]

REACTIONS (1)
  - MYOCARDIAL INFARCTION [None]
